FAERS Safety Report 6147729-5 (Version None)
Quarter: 2009Q2

REPORT INFORMATION
  Report Type: 
  Country: None (occurrence: None)
  Receive Date: 20090402
  Receipt Date: 20081203
  Transmission Date: 20091009
  Serious: Yes (Other)
  Sender: FDA-Public Use
  Company Number: US-WYE-H07073208

PATIENT
  Age: 15 Year
  Sex: Female
  Weight: 59.93 kg

DRUGS (3)
  1. ALAVERT [Suspect]
     Indication: COUGH
     Dosage: 1 TABLET 2X PER 1 DAY, ORAL
     Route: 048
     Dates: start: 20081128, end: 20081130
  2. ALAVERT [Suspect]
     Indication: RHINORRHOEA
     Dosage: 1 TABLET 2X PER 1 DAY, ORAL
     Route: 048
     Dates: start: 20081128, end: 20081130
  3. ALAVERT [Suspect]
     Indication: SINUS CONGESTION
     Dosage: 1 TABLET 2X PER 1 DAY, ORAL
     Route: 048
     Dates: start: 20081128, end: 20081130

REACTIONS (2)
  - HALLUCINATION, AUDITORY [None]
  - HALLUCINATION, VISUAL [None]
